FAERS Safety Report 12337663 (Version 1)
Quarter: 2016Q2

REPORT INFORMATION
  Report Type: Spontaneous
  Country: US (occurrence: US)
  Receive Date: 20160505
  Receipt Date: 20160505
  Transmission Date: 20160815
  Serious: Yes (Other)
  Sender: FDA-Public Use
  Company Number: ADR-2009-7505

PATIENT
  Age: 77 Year
  Sex: Male

DRUGS (1)
  1. LIORESAL [Suspect]
     Active Substance: BACLOFEN
     Route: 037

REACTIONS (6)
  - Hallucination [Unknown]
  - Confusional state [Unknown]
  - Overdose [Unknown]
  - Implant site extravasation [Unknown]
  - Infection [Recovered/Resolved]
  - Therapeutic response decreased [Unknown]
